FAERS Safety Report 9525727 (Version 1)
Quarter: 2013Q1

REPORT INFORMATION
  Report Type: Spontaneous
  Country: US (occurrence: None)
  Receive Date: 20130314
  Receipt Date: 20130314
  Transmission Date: 20140127
  Serious: No
  Sender: FDA-Public Use
  Company Number: 1211USA006286

PATIENT
  Age: 57 Year
  Sex: Male

DRUGS (3)
  1. VICTRELIS (BOCEPREVIR) CAPSULE, 200 MG [Suspect]
     Indication: HEPATITIS C
     Route: 048
     Dates: start: 20120926
  2. PEGASYS (PEGINTERFERON ALFA2-A) [Suspect]
     Indication: HEPATITIS C
     Dosage: 180 MICROGRAM, QW
  3. RIBASPHERE (RIBAVIRIN) [Suspect]
     Indication: HEPATITIS C
     Dosage: 600 MG, BID, ORAL
     Route: 048

REACTIONS (2)
  - Diarrhoea [None]
  - Fatigue [None]
